FAERS Safety Report 23436360 (Version 2)
Quarter: 2024Q4

REPORT INFORMATION
  Report Type: Report from Study
  Country: CA (occurrence: CA)
  Receive Date: 20240124
  Receipt Date: 20241112
  Transmission Date: 20250114
  Serious: Yes (Hospitalization)
  Sender: SANDOZ
  Company Number: CA-002147023-NVSC2022CA290423

PATIENT
  Sex: Female

DRUGS (1)
  1. ERELZI [Suspect]
     Active Substance: ETANERCEPT-SZZS
     Indication: Rheumatoid arthritis
     Dosage: 50 MG, (OTHER DOSAGE 50 MG)
     Route: 058
     Dates: start: 20220310

REACTIONS (7)
  - Hospitalisation [Unknown]
  - Gait disturbance [Unknown]
  - Malaise [Unknown]
  - Nausea [Unknown]
  - Insomnia [Unknown]
  - General physical health deterioration [Unknown]
  - Viral infection [Unknown]
